FAERS Safety Report 7114390-2 (Version None)
Quarter: 2010Q4

REPORT INFORMATION
  Report Type: 
  Country: None (occurrence: None)
  Receive Date: 20101119
  Receipt Date: 20101116
  Transmission Date: 20110411
  Serious: Yes (Other)
  Sender: FDA-Public Use
  Company Number: GB-PFIZER INC-2010149202

PATIENT
  Sex: Male

DRUGS (1)
  1. EPANUTIN [Suspect]
     Dosage: 200 MG/DAY

REACTIONS (2)
  - DERMATITIS [None]
  - RASH [None]
